FAERS Safety Report 12397972 (Version 1)
Quarter: 2016Q2

REPORT INFORMATION
  Report Type: Spontaneous
  Country: US (occurrence: US)
  Receive Date: 20160524
  Receipt Date: 20160524
  Transmission Date: 20160815
  Serious: Yes (Other)
  Sender: FDA-Public Use
  Company Number: US-ACTAVIS-2016-10579

PATIENT
  Age: 66 Year
  Sex: Female

DRUGS (8)
  1. LEVOTHYROXINE. [Concomitant]
     Active Substance: LEVOTHYROXINE
     Indication: HYPOTHYROIDISM
     Route: 048
  2. PROTONIX [Concomitant]
     Active Substance: PANTOPRAZOLE SODIUM
     Indication: CHRONIC GASTRITIS
     Route: 048
  3. KLONOPIN [Concomitant]
     Active Substance: CLONAZEPAM
     Indication: POST-TRAUMATIC STRESS DISORDER
     Route: 048
  4. LUNESTA [Concomitant]
     Active Substance: ESZOPICLONE
     Indication: POST-TRAUMATIC STRESS DISORDER
     Route: 048
  5. OXYCODONE-ACETAMINOPHEN (AELLC) [Suspect]
     Active Substance: ACETAMINOPHEN\OXYCODONE HYDROCHLORIDE
     Indication: PROCEDURAL PAIN
     Dosage: 1-2 DOSE FORMS, EVERY 4 HOURS
     Route: 048
     Dates: start: 20160510, end: 20160516
  6. LISINOPRIL. [Concomitant]
     Active Substance: LISINOPRIL
     Indication: HYPERTENSION
     Route: 048
  7. LAMICTAL [Concomitant]
     Active Substance: LAMOTRIGINE
     Indication: POST-TRAUMATIC STRESS DISORDER
     Route: 048
  8. PROVIGIL [Concomitant]
     Active Substance: MODAFINIL
     Indication: INSOMNIA
     Route: 048

REACTIONS (5)
  - Anaphylactic reaction [Recovered/Resolved]
  - Hallucination [Recovered/Resolved]
  - Peripheral swelling [Recovered/Resolved]
  - Joint swelling [Recovered/Resolved]
  - Oedema [Recovered/Resolved]

NARRATIVE: CASE EVENT DATE: 20160512
